FAERS Safety Report 5022085-4 (Version None)
Quarter: 2006Q2

REPORT INFORMATION
  Report Type: 
  Country: None (occurrence: None)
  Receive Date: 20060609
  Receipt Date: 20060601
  Transmission Date: 20061013
  Serious: Yes (Hospitalization)
  Sender: FDA-Public Use
  Company Number: US-JNJFOC-20060600442

PATIENT
  Sex: Female

DRUGS (18)
  1. REMICADE [Suspect]
     Indication: RHEUMATOID ARTHRITIS
     Route: 042
  2. ASPIRIN [Concomitant]
  3. CELEBREX [Concomitant]
  4. FOLIC ACID [Concomitant]
  5. METHOTREXATE [Concomitant]
  6. MULTI-VITAMIN [Concomitant]
  7. MULTI-VITAMIN [Concomitant]
  8. MULTI-VITAMIN [Concomitant]
  9. MULTI-VITAMIN [Concomitant]
  10. MULTI-VITAMIN [Concomitant]
  11. MULTI-VITAMIN [Concomitant]
  12. MULTI-VITAMIN [Concomitant]
  13. MULTI-VITAMIN [Concomitant]
  14. ACIPHEX [Concomitant]
  15. TYLENOL (CAPLET) [Concomitant]
  16. CALCIUM+D [Concomitant]
  17. CALCIUM+D [Concomitant]
  18. CALCIUM+D [Concomitant]

REACTIONS (3)
  - DEEP VEIN THROMBOSIS [None]
  - DILATATION ATRIAL [None]
  - VENTRICULAR HYPERTROPHY [None]
